FAERS Safety Report 15331719 (Version 2)
Quarter: 2018Q3

REPORT INFORMATION
  Report Type: Spontaneous
  Country: US (occurrence: US)
  Receive Date: 20180829
  Receipt Date: 20180904
  Transmission Date: 20181010
  Serious: Yes (Other)
  Sender: FDA-Public Use
  Company Number: US-PFIZER INC-2018345534

PATIENT
  Age: 60 Year
  Sex: Male

DRUGS (13)
  1. ANCEF [CEFAZOLIN SODIUM] [Concomitant]
     Indication: ANAESTHESIA
  2. VALIUM [Concomitant]
     Active Substance: DIAZEPAM
     Indication: ENDOTRACHEAL INTUBATION
     Dosage: 10 MG, UNK
  3. ETHRANE [Concomitant]
     Active Substance: ENFLURANE
     Indication: ENDOTRACHEAL INTUBATION
     Dosage: UNK
  4. VALIUM [Concomitant]
     Active Substance: DIAZEPAM
     Indication: ANAESTHESIA
     Dosage: 5 MG, UNK
  5. PAVULON [Concomitant]
     Active Substance: PANCURONIUM BROMIDE
     Indication: ENDOTRACHEAL INTUBATION
     Dosage: 15 MG, UNK
  6. NITROGLYCERIN. [Suspect]
     Active Substance: NITROGLYCERIN
     Indication: VASCULAR RESISTANCE SYSTEMIC NORMAL
     Dosage: 15 MG IN 250ML OF 5% GLUCOSE; 1.5ML/MIN
     Route: 042
  7. FENTANYL. [Concomitant]
     Active Substance: FENTANYL
     Indication: ENDOTRACHEAL INTUBATION
     Dosage: UNK 80CC
  8. ETHRANE [Concomitant]
     Active Substance: ENFLURANE
     Indication: ANAESTHESIA
  9. FENTANYL. [Concomitant]
     Active Substance: FENTANYL
     Dosage: UNK(10 CC)
  10. PAVULON [Concomitant]
     Active Substance: PANCURONIUM BROMIDE
     Indication: ANAESTHESIA
     Dosage: 5 MG, UNK
  11. ANCEF [CEFAZOLIN SODIUM] [Concomitant]
     Indication: ENDOTRACHEAL INTUBATION
     Dosage: 2 G, UNK
  12. FENTANYL. [Concomitant]
     Active Substance: FENTANYL
     Indication: ANAESTHESIA
     Dosage: UNK (20 CC)
  13. GLUCOSE [Concomitant]
     Active Substance: DEXTROSE
     Dosage: 250 (250CC. 5% GL. 0.5CC./MIN)

REACTIONS (2)
  - Methaemoglobinaemia [Recovered/Resolved]
  - Cyanosis [Recovered/Resolved]
